FAERS Safety Report 13063975 (Version 9)
Quarter: 2017Q4

REPORT INFORMATION
  Report Type: Spontaneous
  Country: US (occurrence: US)
  Receive Date: 20161227
  Receipt Date: 20171227
  Transmission Date: 20180320
  Serious: Yes (Death, Hospitalization)
  Sender: FDA-Public Use
  Company Number: US-PFIZER INC-2016590692

PATIENT
  Age: 61 Year
  Sex: Female
  Weight: 122.45 kg

DRUGS (6)
  1. IBRANCE [Suspect]
     Active Substance: PALBOCICLIB
     Dosage: 125 MG, CYCLIC (DAYS 1-21, EVERY 28 DAYS)
     Route: 048
  2. IBRANCE [Suspect]
     Active Substance: PALBOCICLIB
     Dosage: 125 MG, CYCLIC (DAYS 1-21, EVERY 28 DAYS)
     Route: 048
  3. IBRANCE [Suspect]
     Active Substance: PALBOCICLIB
     Dosage: 100 MG, CYCLIC, (D 1-21 Q28 DAYS)
     Route: 048
  4. IBRANCE [Suspect]
     Active Substance: PALBOCICLIB
     Dosage: 100 MG, CYCLIC, (1-21 Q28 DAYS)
     Route: 048
     Dates: start: 20140102, end: 201711
  5. IBRANCE [Suspect]
     Active Substance: PALBOCICLIB
     Dosage: 125 MG, CYCLIC (DAYS 1-21, EVERY 28 DAYS)
     Route: 048
  6. IBRANCE [Suspect]
     Active Substance: PALBOCICLIB
     Indication: BREAST CANCER METASTATIC
     Dosage: 125 MG, CYCLIC (D1-21 EVERY 28 DAYS)
     Route: 048
     Dates: start: 20140120

REACTIONS (23)
  - Death [Fatal]
  - Urinary tract infection [Unknown]
  - Oesophageal pain [Unknown]
  - Stomatitis [Not Recovered/Not Resolved]
  - Oral mucosal exfoliation [Unknown]
  - Dysstasia [Unknown]
  - Haemoglobin decreased [Unknown]
  - Neoplasm progression [Not Recovered/Not Resolved]
  - Migraine [Unknown]
  - Pneumonia [Unknown]
  - Pulmonary mass [Unknown]
  - Thrombosis [Unknown]
  - Pulmonary embolism [Unknown]
  - Burn oesophageal [Unknown]
  - Dysphagia [Unknown]
  - Oxygen saturation decreased [Unknown]
  - Pain [Unknown]
  - Mucosal inflammation [Not Recovered/Not Resolved]
  - Odynophagia [Unknown]
  - Oesophageal obstruction [Unknown]
  - Fatigue [Unknown]
  - Asthenia [Unknown]
  - Drug dose omission [Unknown]

NARRATIVE: CASE EVENT DATE: 201609
